FAERS Safety Report 5816904-9 (Version None)
Quarter: 2008Q3

REPORT INFORMATION
  Report Type: 
  Country: None (occurrence: None)
  Receive Date: 20080722
  Receipt Date: 20080717
  Transmission Date: 20090109
  Serious: Yes (Other)
  Sender: FDA-Public Use
  Company Number: US-BRISTOL-MYERS SQUIBB COMPANY-14268262

PATIENT
  Age: 25 Year
  Sex: Female

DRUGS (2)
  1. DIDANOSINE [Suspect]
  2. ABACAVIR SULFATE LAMIVUDINE AND ZIDOVUDINE [Suspect]
     Dosage: 1 DOSAGE FORM=2 (UNITS NOT SPEC)
     Route: 048

REACTIONS (2)
  - ABORTION SPONTANEOUS [None]
  - PREGNANCY [None]
